FAERS Safety Report 13540298 (Version 1)
Quarter: 2017Q2

REPORT INFORMATION
  Report Type: Spontaneous
  Country: CH (occurrence: CH)
  Receive Date: 20170512
  Receipt Date: 20170512
  Transmission Date: 20170830
  Serious: Yes (Hospitalization, Other)
  Sender: FDA-Public Use
  Company Number: CH-ASTRAZENECA-2017SE48972

PATIENT
  Age: 81 Year
  Sex: Female
  Weight: 49 kg

DRUGS (6)
  1. TARCEVA [Concomitant]
     Active Substance: ERLOTINIB HYDROCHLORIDE
     Dates: start: 20151116
  2. ASPIRIN. [Concomitant]
     Active Substance: ASPIRIN
     Route: 048
  3. TARCEVA [Concomitant]
     Active Substance: ERLOTINIB HYDROCHLORIDE
     Dates: start: 20160206
  4. PREDNISONE. [Concomitant]
     Active Substance: PREDNISONE
     Route: 048
  5. TAGRISSO [Suspect]
     Active Substance: OSIMERTINIB
     Route: 048
     Dates: start: 20161103
  6. TORASEMIDE [Concomitant]
     Active Substance: TORSEMIDE
     Route: 048

REACTIONS (11)
  - Metastases to pleura [Unknown]
  - Cardiac tamponade [Unknown]
  - Pulmonary hypertension [Unknown]
  - Dyslipidaemia [Unknown]
  - Metastases to lung [Unknown]
  - Atrioventricular block first degree [Unknown]
  - Lymphangiosis carcinomatosa [Unknown]
  - Hyponatraemia [Unknown]
  - Hypertension [Unknown]
  - Cardiac failure [Unknown]
  - Tumour embolism [Unknown]

NARRATIVE: CASE EVENT DATE: 20161113
